FAERS Safety Report 10738401 (Version 1)
Quarter: 2015Q1

REPORT INFORMATION
  Report Type: Spontaneous
  Country: HR (occurrence: HR)
  Receive Date: 20150126
  Receipt Date: 20150126
  Transmission Date: 20150721
  Serious: Yes (Hospitalization)
  Sender: FDA-Public Use
  Company Number: HR-ACTAVIS-2015-00504

PATIENT
  Age: 36 Year
  Sex: Female

DRUGS (1)
  1. DOCETAXEL ACTAVIS [Suspect]
     Active Substance: DOCETAXEL
     Indication: BREAST CANCER FEMALE
     Dosage: 120 MG, UNKNOWN
     Route: 041
     Dates: start: 20140623, end: 20140623

REACTIONS (5)
  - Oropharyngeal pain [Recovered/Resolved]
  - Body temperature increased [Recovered/Resolved]
  - Candiduria [Recovered/Resolved]
  - Neutropenia [Recovered/Resolved]
  - Oral candidiasis [Recovered/Resolved]

NARRATIVE: CASE EVENT DATE: 20140630
